FAERS Safety Report 5030061-0 (Version None)
Quarter: 2006Q2

REPORT INFORMATION
  Report Type: 
  Country: None (occurrence: None)
  Receive Date: 20060620
  Receipt Date: 20060403
  Transmission Date: 20061013
  Serious: Yes (Hospitalization)
  Sender: FDA-Public Use
  Company Number: PHHO2006FR05427

PATIENT
  Age: 51 Year
  Sex: Male
  Weight: 80 kg

DRUGS (5)
  1. CERTICAN [Suspect]
     Indication: RENAL TRANSPLANT
     Dosage: 1 MG, BID
     Route: 048
     Dates: start: 20060401
  2. NEORAL [Suspect]
     Indication: TRANSPLANT
     Dosage: 225 MG, BID
     Route: 048
     Dates: start: 20060401
  3. SOLU-MEDROL [Concomitant]
     Indication: HEART TRANSPLANT
     Dosage: 80 MG, QD
     Dates: start: 20060331
  4. THYMOGLOBULIN [Concomitant]
     Indication: HEART TRANSPLANT
     Dosage: 200 MG, QD
     Dates: start: 20060331
  5. SOLUPRED [Concomitant]
     Dosage: 40 MG
     Route: 048
     Dates: start: 20060331

REACTIONS (5)
  - ANURIA [None]
  - DIALYSIS [None]
  - RENAL IMPAIRMENT [None]
  - RENAL TUBULAR NECROSIS [None]
  - RHABDOMYOLYSIS [None]
